FAERS Safety Report 14595037 (Version 1)
Quarter: 2018Q1

REPORT INFORMATION
  Report Type: Spontaneous
  Country: US (occurrence: US)
  Receive Date: 20180302
  Receipt Date: 20180302
  Transmission Date: 20180509
  Serious: Yes (Other)
  Sender: FDA-Public Use
  Company Number: US-AKORN PHARMACEUTICALS-2017AKN00646

PATIENT
  Age: 15 Year
  Sex: Female
  Weight: 52.15 kg

DRUGS (1)
  1. MYORISAN [Suspect]
     Active Substance: ISOTRETINOIN
     Indication: ACNE CYSTIC
     Dosage: UNK
     Dates: start: 20170314, end: 2017

REACTIONS (9)
  - Blood glucose increased [Not Recovered/Not Resolved]
  - Carbon dioxide increased [Recovered/Resolved]
  - Leukopenia [Recovered/Resolved]
  - Viral infection [Unknown]
  - Nucleated red cells [Recovered/Resolved]
  - Eosinophil count decreased [Recovered/Resolved]
  - Neutropenia [Recovered/Resolved]
  - High density lipoprotein decreased [Recovered/Resolved]
  - Non-high-density lipoprotein cholesterol increased [Recovered/Resolved]

NARRATIVE: CASE EVENT DATE: 2017
